FAERS Safety Report 9418621 (Version 1)
Quarter: 2013Q3

REPORT INFORMATION
  Report Type: Spontaneous
  Country: FR (occurrence: FR)
  Receive Date: 20130725
  Receipt Date: 20130725
  Transmission Date: 20140515
  Serious: Yes (Death)
  Sender: FDA-Public Use
  Company Number: FR-ASTRAZENECA-2013SE55864

PATIENT
  Age: 19050 Day
  Sex: Male

DRUGS (3)
  1. ZESTRIL [Suspect]
     Route: 048
  2. XANAX [Suspect]
  3. PRIMALAN [Suspect]

REACTIONS (1)
  - Accidental death [Fatal]
